FAERS Safety Report 6317730-7 (Version None)
Quarter: 2009Q3

REPORT INFORMATION
  Report Type: 
  Country: None (occurrence: None)
  Receive Date: 20090821
  Receipt Date: 20090810
  Transmission Date: 20100115
  Serious: Yes (Life-Threatening, Hospitalization)
  Sender: FDA-Public Use
  Company Number: PHHY2009JP29324

PATIENT
  Age: 83 Year
  Sex: Female

DRUGS (10)
  1. METOPIRONE [Suspect]
     Indication: ECTOPIC ACTH SYNDROME
     Dosage: 500 MG, TID
     Route: 048
     Dates: start: 20090130, end: 20090201
  2. MITOTANE [Concomitant]
  3. DIOVAN [Concomitant]
     Indication: HYPERTENSION
     Dosage: 160 MG
     Route: 048
     Dates: start: 20090126, end: 20090201
  4. CONIEL [Concomitant]
     Indication: HYPERTENSION
     Dosage: 8 MG
     Route: 048
     Dates: start: 20090121, end: 20090201
  5. OMEPRAL [Concomitant]
     Indication: GASTRIC ULCER
     Dosage: 20 MG
     Route: 048
     Dates: start: 20090127, end: 20090201
  6. SLOW-K [Concomitant]
     Indication: HYPOKALAEMIA
     Dosage: 2400 MG
     Route: 048
     Dates: start: 20090121, end: 20090201
  7. BAKTAR [Concomitant]
     Indication: INFECTION
     Dosage: UNK
     Route: 048
     Dates: start: 20090130, end: 20090201
  8. DIFLUCAN [Concomitant]
     Indication: INFECTION
     Dosage: 100 MG
     Route: 048
     Dates: start: 20090130, end: 20090201
  9. HUMULIN R [Concomitant]
     Indication: DIABETES MELLITUS
     Dosage: 14 DF
     Route: 058
     Dates: start: 20090122
  10. HUMULIN N [Concomitant]
     Indication: DIABETES MELLITUS
     Dosage: 10 DF
     Route: 058
     Dates: start: 20090122

REACTIONS (10)
  - ADRENOCORTICAL INSUFFICIENCY ACUTE [None]
  - BLOOD CALCIUM DECREASED [None]
  - BLOOD GLUCOSE DECREASED [None]
  - BLOOD LACTIC ACID DECREASED [None]
  - BLOOD PRESSURE DECREASED [None]
  - HAEMATOCRIT DECREASED [None]
  - HAEMOGLOBIN DECREASED [None]
  - HEART RATE INCREASED [None]
  - PCO2 DECREASED [None]
  - PO2 DECREASED [None]
